FAERS Safety Report 17227322 (Version 1)
Quarter: 2020Q1

REPORT INFORMATION
  Report Type: Spontaneous
  Country: ES (occurrence: ES)
  Receive Date: 20200103
  Receipt Date: 20200103
  Transmission Date: 20200409
  Serious: Yes (Other)
  Sender: FDA-Public Use
  Company Number: ES-TEVA-2019-ES-1160717

PATIENT
  Age: 70 Year
  Sex: Female
  Weight: 66 kg

DRUGS (4)
  1. EBASTINA 10 MG COMPRIMIDO [Concomitant]
     Indication: RHINITIS
     Dosage: 10 MG
     Route: 048
     Dates: start: 20140527
  2. ATORVASTATINA [ATORVASTATIN] [Suspect]
     Active Substance: ATORVASTATIN
     Indication: TYPE IIA HYPERLIPIDAEMIA
     Dosage: 40 MG
     Route: 048
     Dates: start: 20180527
  3. RAMIPRIL 2,5 MG COMPRIMIDO [Concomitant]
     Active Substance: RAMIPRIL
     Indication: HYPERTENSION
     Dosage: 2.5 MG
     Route: 048
     Dates: start: 20180518
  4. DICLOFENACO 50 MG COMPRIMIDO DISPERSABLE [Concomitant]
     Indication: ARTHRALGIA
     Dosage: 50 MG
     Route: 048
     Dates: start: 20180428

REACTIONS (1)
  - Muscle rupture [Recovering/Resolving]

NARRATIVE: CASE EVENT DATE: 20190901
